FAERS Safety Report 14980136 (Version 9)
Quarter: 2020Q2

REPORT INFORMATION
  Report Type: Report from Study
  Country: DE (occurrence: DE)
  Receive Date: 20180606
  Receipt Date: 20200401
  Transmission Date: 20200713
  Serious: Yes (Death, Life-Threatening, Hospitalization)
  Sender: FDA-Public Use
  Company Number: DE-PFIZER INC-2018225850

PATIENT
  Age: 50 Year
  Sex: Female
  Weight: 66 kg

DRUGS (16)
  1. HERCEPTIN [Suspect]
     Active Substance: TRASTUZUMAB
     Dosage: 6 MG/KG, EVERY 21 DAYS
     Route: 041
     Dates: start: 20140108
  2. PERTUZUMAB. [Suspect]
     Active Substance: PERTUZUMAB
     Dosage: 420 MG, MOST RECENT DOSE ON 05JUL2017
     Route: 042
     Dates: start: 20161108, end: 20170827
  3. ATORVASTATIN [Concomitant]
     Active Substance: ATORVASTATIN
     Indication: HYPERCHOLESTEROLAEMIA
     Dosage: 20 MG, 1X/DAY
     Route: 048
     Dates: end: 20170827
  4. CLOPIDOGREL [Concomitant]
     Active Substance: CLOPIDOGREL BISULFATE
     Dates: start: 20170621, end: 20170827
  5. KEPPRA [Concomitant]
     Active Substance: LEVETIRACETAM
     Indication: EPILEPSY
     Dosage: 1500 MG, 1X/DAY, LAST DOSE ON 06JAN2017
     Route: 048
     Dates: start: 20060630, end: 20170827
  6. PANTOPRAZOL [Concomitant]
     Active Substance: PANTOPRAZOLE SODIUM
     Dosage: UNK
     Dates: start: 20170621, end: 20170827
  7. LETROZOL [Suspect]
     Active Substance: LETROZOLE
     Dosage: 2.5 MG, LAST DOSE PRIOR TO SAE 18AUG2017
     Route: 065
     Dates: start: 201405, end: 20170827
  8. HERCEPTIN [Suspect]
     Active Substance: TRASTUZUMAB
     Dosage: UNK
  9. HERCEPTIN [Suspect]
     Active Substance: TRASTUZUMAB
     Dosage: 6 MG/KG, EVERY 21 DAYS
     Route: 042
     Dates: start: 20140108
  10. ASS LIGHT [Concomitant]
     Indication: CEREBROVASCULAR ACCIDENT
     Dosage: 100 MG, UNK
     Route: 065
     Dates: end: 20170106
  11. ZOMETA [Suspect]
     Active Substance: ZOLEDRONIC ACID
     Dosage: 4 MG, MOST RECENT DOSE ON 19JUL2017
     Dates: start: 20170302, end: 20170827
  12. HERCEPTIN [Suspect]
     Active Substance: TRASTUZUMAB
     Dosage: 6 MG/KG EVERY 21 DAYS
     Route: 042
     Dates: start: 20161108
  13. HERCEPTIN [Suspect]
     Active Substance: TRASTUZUMAB
     Dosage: 6 MG/KG, MOST RECENT DOSE ON 05JUL2017
     Route: 042
     Dates: start: 20160108, end: 20170827
  14. DOCETAXEL. [Suspect]
     Active Substance: DOCETAXEL
     Dosage: 60-75 MG/M2
     Route: 042
     Dates: start: 20161108
  15. PERTUZUMAB. [Suspect]
     Active Substance: PERTUZUMAB
     Dosage: 420 MG, EVERY 21 DAYS
     Route: 042
     Dates: start: 20161108
  16. PANTOPRAZOL [Concomitant]
     Active Substance: PANTOPRAZOLE SODIUM
     Dosage: UNK
     Route: 065
     Dates: end: 20170106

REACTIONS (13)
  - Fatigue [Recovered/Resolved]
  - Neoplasm progression [Fatal]
  - Dysuria [Not Recovered/Not Resolved]
  - Cough [Recovered/Resolved]
  - Vertigo [Recovered/Resolved]
  - Epistaxis [Recovered/Resolved]
  - Neutropenia [Recovered/Resolved]
  - Mucosal inflammation [Recovered/Resolved]
  - Stomatitis [Not Recovered/Not Resolved]
  - Diarrhoea [Recovered/Resolved]
  - Cough [Not Recovered/Not Resolved]
  - Febrile neutropenia [Not Recovered/Not Resolved]
  - Dysgeusia [Recovered/Resolved]

NARRATIVE: CASE EVENT DATE: 20161115
